FAERS Safety Report 12770674 (Version 1)
Quarter: 2016Q3

REPORT INFORMATION
  Report Type: Spontaneous
  Country: US (occurrence: US)
  Receive Date: 20160922
  Receipt Date: 20160922
  Transmission Date: 20161109
  Serious: No
  Sender: FDA-Public Use
  Company Number: US-TEVA-655590USA

PATIENT
  Sex: Female

DRUGS (1)
  1. DIPYRIDAMOLE. [Suspect]
     Active Substance: DIPYRIDAMOLE
     Indication: ANTICOAGULANT THERAPY
     Dates: start: 20160202

REACTIONS (7)
  - Blood pressure increased [Unknown]
  - Weight decreased [Unknown]
  - Fatigue [Unknown]
  - Pallor [Unknown]
  - Candida infection [Unknown]
  - Tongue discolouration [Unknown]
  - Product substitution issue [Unknown]

NARRATIVE: CASE EVENT DATE: 201603
